FAERS Safety Report 19535563 (Version 1)
Quarter: 2021Q3

REPORT INFORMATION
  Report Type: Spontaneous
  Country: US (occurrence: US)
  Receive Date: 20210713
  Receipt Date: 20210713
  Transmission Date: 20211014
  Serious: Yes (Other)
  Sender: FDA-Public Use
  Company Number: None

PATIENT
  Age: 64 Year
  Sex: Female
  Weight: 63 kg

DRUGS (6)
  1. PROBIOTIC [Concomitant]
     Active Substance: PROBIOTICS NOS
  2. METOPROLOL SUCCINATE 25MG [Suspect]
     Active Substance: METOPROLOL SUCCINATE
     Indication: PALPITATIONS
     Dosage: ?          QUANTITY:1.5 TABLET(S);?
     Route: 048
     Dates: start: 20210119, end: 20210123
  3. BABY ASPIRIN [Concomitant]
     Active Substance: ASPIRIN
  4. ALLER?CORT NASAL SPRAY [Concomitant]
  5. METOPROLOL SUCCINATE 25MG [Suspect]
     Active Substance: METOPROLOL SUCCINATE
     Indication: SUPRAVENTRICULAR TACHYCARDIA
     Dosage: ?          QUANTITY:1.5 TABLET(S);?
     Route: 048
     Dates: start: 20210119, end: 20210123
  6. VIT D [Concomitant]
     Active Substance: VITAMIN D NOS

REACTIONS (2)
  - Product substitution issue [None]
  - Symptom recurrence [None]

NARRATIVE: CASE EVENT DATE: 20210119
